FAERS Safety Report 7816892-X (Version None)
Quarter: 2011Q4

REPORT INFORMATION
  Report Type: 
  Country: None (occurrence: None)
  Receive Date: 20111017
  Receipt Date: 20111012
  Transmission Date: 20120403
  Serious: Yes (Other)
  Sender: FDA-Public Use
  Company Number: US-GENZYME-RENA-1001183

PATIENT
  Sex: Male

DRUGS (11)
  1. CATAPRES [Concomitant]
     Indication: PRODUCT USED FOR UNKNOWN INDICATION
  2. RENAGEL [Suspect]
     Indication: HYPERPHOSPHATAEMIA
     Dosage: 3.2 G, TID
     Dates: start: 20080201
  3. LAC-HYDRIN [Concomitant]
     Indication: PRODUCT USED FOR UNKNOWN INDICATION
  4. VITAMIN B COMPLEX CAP [Concomitant]
     Indication: PRODUCT USED FOR UNKNOWN INDICATION
  5. LOTREL [Concomitant]
     Indication: PRODUCT USED FOR UNKNOWN INDICATION
  6. BENADRYL [Concomitant]
     Indication: PRODUCT USED FOR UNKNOWN INDICATION
  7. GABAPENTIN [Concomitant]
     Indication: PRODUCT USED FOR UNKNOWN INDICATION
  8. FLEXERIL [Concomitant]
     Indication: PRODUCT USED FOR UNKNOWN INDICATION
  9. CARDURA [Concomitant]
     Indication: PRODUCT USED FOR UNKNOWN INDICATION
  10. SODIUM BICARBONATE [Concomitant]
     Indication: PRODUCT USED FOR UNKNOWN INDICATION
  11. RENAGEL [Suspect]
     Dosage: 1.6 G, TID
     Dates: start: 20110517

REACTIONS (4)
  - INTESTINAL ISCHAEMIA [None]
  - SMALL INTESTINAL OBSTRUCTION [None]
  - ADHESION [None]
  - HAEMORRHAGIC ASCITES [None]
